FAERS Safety Report 8819149 (Version 2)
Quarter: 2013Q2

REPORT INFORMATION
  Report Type: Spontaneous
  Country: US (occurrence: US)
  Receive Date: 20121001
  Receipt Date: 20130415
  Transmission Date: 20140414
  Serious: Yes (Other)
  Sender: FDA-Public Use
  Company Number: US-PFIZER INC-2012239414

PATIENT
  Age: 45 Year
  Sex: Female
  Weight: 80.73 kg

DRUGS (1)
  1. PRISTIQ [Suspect]
     Indication: FIBROMYALGIA
     Dosage: 50 MG, 1X/DAY

REACTIONS (6)
  - Off label use [Unknown]
  - Activities of daily living impaired [Unknown]
  - Fibromyalgia [Unknown]
  - Arthritis [Not Recovered/Not Resolved]
  - Feeling abnormal [Unknown]
  - Malaise [Unknown]
